FAERS Safety Report 6905771-8 (Version None)
Quarter: 2010Q3

REPORT INFORMATION
  Report Type: 
  Country: None (occurrence: None)
  Receive Date: 20100730
  Receipt Date: 20100722
  Transmission Date: 20110219
  Serious: Yes (Death)
  Sender: FDA-Public Use
  Company Number: TPA2010A04211

PATIENT
  Age: 62 Year
  Sex: Female

DRUGS (2)
  1. KAPIDEX (DEXLANSOPRAZOLE) [Suspect]
     Indication: PRODUCT USED FOR UNKNOWN INDICATION
     Dosage: 60 MG, 1 IN 1 D, PER ORAL
     Route: 048
     Dates: start: 20090930
  2. TROPROL XL (METOPROLOL SUCCINATE) [Concomitant]

REACTIONS (1)
  - DEATH [None]
